FAERS Safety Report 20346919 (Version 4)
Quarter: 2023Q4

REPORT INFORMATION
  Report Type: Spontaneous
  Country: US (occurrence: US)
  Receive Date: 20220118
  Receipt Date: 20231009
  Transmission Date: 20240110
  Serious: Yes (Hospitalization, Other)
  Sender: FDA-Public Use
  Company Number: US-PFIZER INC-202101142470

PATIENT
  Age: 79 Year
  Sex: Female
  Weight: 54.88 kg

DRUGS (1)
  1. VYNDAMAX [Suspect]
     Active Substance: TAFAMIDIS
     Dosage: 61 MG

REACTIONS (5)
  - Intra-ocular injection [Unknown]
  - Illness [Not Recovered/Not Resolved]
  - Fall [Unknown]
  - COVID-19 [Unknown]
  - Weight decreased [Unknown]
